FAERS Safety Report 11062879 (Version 1)
Quarter: 2015Q2

REPORT INFORMATION
  Report Type: Spontaneous
  Country: HR (occurrence: HR)
  Receive Date: 20150424
  Receipt Date: 20150424
  Transmission Date: 20150821
  Serious: Yes (Other)
  Sender: FDA-Public Use
  Company Number: HR-PFIZER INC-2015141173

PATIENT
  Age: 31 Year
  Sex: Male
  Weight: 97 kg

DRUGS (3)
  1. CONTROLOC [Suspect]
     Active Substance: PANTOPRAZOLE SODIUM
     Indication: HELICOBACTER INFECTION
     Dosage: 20 MG, 2X/DAY
     Route: 048
     Dates: start: 20150324
  2. AMOKSICILIN [Suspect]
     Active Substance: AMOXICILLIN
     Indication: HELICOBACTER INFECTION
     Dosage: 500 MG, 3X/DAY
     Route: 048
     Dates: start: 20150324, end: 20150328
  3. MAKCIN SR 500 MG TABLETS [Suspect]
     Active Substance: CLARITHROMYCIN
     Indication: HELICOBACTER INFECTION
     Dosage: 500 MG, DAILY
     Route: 048
     Dates: start: 20150324, end: 20150328

REACTIONS (5)
  - Heart rate increased [Recovered/Resolved]
  - Choking [Recovered/Resolved]
  - Blood pressure increased [Recovered/Resolved]
  - Swollen tongue [Recovered/Resolved]
  - Anaphylactic reaction [Recovered/Resolved]

NARRATIVE: CASE EVENT DATE: 20150328
